FAERS Safety Report 5035041-7 (Version None)
Quarter: 2006Q2

REPORT INFORMATION
  Report Type: 
  Country: None (occurrence: None)
  Receive Date: 20060622
  Receipt Date: 20060615
  Transmission Date: 20061013
  Serious: Yes (Death)
  Sender: FDA-Public Use
  Company Number: 2006-143933-NL

PATIENT
  Age: 25 Year
  Sex: Female

DRUGS (1)
  1. ETHINYL ESTRADIOL / DESOGESTREL [Suspect]
     Dosage: DF
     Route: 048
     Dates: start: 19910815, end: 19911201

REACTIONS (4)
  - ABDOMINAL PAIN UPPER [None]
  - LOSS OF CONSCIOUSNESS [None]
  - PULMONARY EMBOLISM [None]
  - THROMBOSIS [None]
